FAERS Safety Report 17470591 (Version 1)
Quarter: 2020Q1

REPORT INFORMATION
  Report Type: Spontaneous
  Country: TR (occurrence: TR)
  Receive Date: 20200228
  Receipt Date: 20200228
  Transmission Date: 20200409
  Serious: Yes (Other)
  Sender: FDA-Public Use
  Company Number: TR-SUN PHARMACEUTICAL INDUSTRIES LTD-2020RR-238049

PATIENT
  Sex: Male
  Weight: .82 kg

DRUGS (1)
  1. IBUPROFEN. [Suspect]
     Active Substance: IBUPROFEN
     Indication: PATENT DUCTUS ARTERIOSUS
     Dosage: 10/5/5MG/KG/DAY AT 24HOUR INTERVALS
     Route: 048

REACTIONS (2)
  - Drug ineffective [Unknown]
  - Thrombocytopenia [Unknown]
